FAERS Safety Report 5485967-5 (Version None)
Quarter: 2007Q4

REPORT INFORMATION
  Report Type: 
  Country: None (occurrence: None)
  Receive Date: 20071012
  Receipt Date: 20070927
  Transmission Date: 20080405
  Serious: Yes (Life-Threatening)
  Sender: FDA-Public Use
  Company Number: 07H-167-0313297-00

PATIENT
  Age: 7 Year
  Sex: Female
  Weight: 22.5 kg

DRUGS (4)
  1. ONDANSETRON [Suspect]
     Indication: PROPHYLAXIS OF NAUSEA AND VOMITING
     Dosage: INTRAVENOUS
     Route: 042
     Dates: start: 20070831, end: 20070831
  2. FENTANYL [Concomitant]
  3. PROPOFOL [Concomitant]
  4. SUXAMETHONIUM (SUXAMETHONIUM) [Concomitant]

REACTIONS (3)
  - HEART RATE INCREASED [None]
  - MOBILITY DECREASED [None]
  - RESPIRATORY RATE DECREASED [None]
